FAERS Safety Report 15985970 (Version 2)
Quarter: 2019Q1

REPORT INFORMATION
  Report Type: Report from Study
  Country: US (occurrence: US)
  Receive Date: 20190220
  Receipt Date: 20190227
  Transmission Date: 20190418
  Serious: Yes (Hospitalization)
  Sender: FDA-Public Use
  Company Number: US-ROCHE-2265951

PATIENT
  Age: 51 Year
  Sex: Female
  Weight: 57.06 kg

DRUGS (2)
  1. ATEZOLIZUMAB. [Suspect]
     Active Substance: ATEZOLIZUMAB
     Indication: PANCREATIC CARCINOMA METASTATIC
     Dosage: ON 16/JAN/2019, MOST RECENT DOSE OF ATEZOLIZUMAB PRIOR TO AE ONSET.
     Route: 042
     Dates: start: 20190116
  2. PEGPH20 [Suspect]
     Active Substance: PEGVORHYALURONIDASE ALFA
     Indication: PANCREATIC CARCINOMA METASTATIC
     Dosage: ON 16/JAN/2019, MOST RECENT DOSE 156 MG OF PEGVORHYALURONIDASE ALFA PRIOR TO AE ONSET.
     Route: 042
     Dates: start: 20190116

REACTIONS (1)
  - Small intestinal obstruction [Recovered/Resolved]

NARRATIVE: CASE EVENT DATE: 20190202
